FAERS Safety Report 24008351 (Version 2)
Quarter: 2024Q3

REPORT INFORMATION
  Report Type: Spontaneous
  Country: DE (occurrence: DE)
  Receive Date: 20240625
  Receipt Date: 20240805
  Transmission Date: 20241016
  Serious: Yes (Hospitalization, Other)
  Sender: CHEPLAPHARM
  Company Number: None

PATIENT
  Age: 44 Year
  Sex: Female
  Weight: 111 kg

DRUGS (16)
  1. CAPECITABINE [Suspect]
     Active Substance: CAPECITABINE
     Indication: HER2 positive breast cancer
     Dosage: 1600 QD
     Route: 048
  2. TUCATINIB [Suspect]
     Active Substance: TUCATINIB
     Indication: HER2 positive breast cancer
     Dosage: DAILY DOSE: 300 MILLIGRAM
     Route: 048
     Dates: start: 20230404
  3. TRASTUZUMAB [Suspect]
     Active Substance: TRASTUZUMAB
     Indication: HER2 positive breast cancer
     Route: 042
     Dates: start: 20230322
  4. TRASTUZUMAB [Suspect]
     Active Substance: TRASTUZUMAB
     Indication: HER2 positive breast cancer
     Dosage: 600 MG, Q3WEEKS
     Route: 058
  5. SERTRALINE [Concomitant]
     Active Substance: SERTRALINE HYDROCHLORIDE
     Indication: Prophylaxis
     Dosage: DAILY DOSE: 100 MILLIGRAM
     Route: 048
     Dates: start: 20140101
  6. CALCIUM CARBONATE [Concomitant]
     Active Substance: CALCIUM CARBONATE
     Indication: Prophylaxis
     Dosage: DAILY DOSE: 1000 MILLIGRAM
     Route: 048
     Dates: start: 20230726
  7. PANTOPRAZOLE [Concomitant]
     Active Substance: PANTOPRAZOLE
     Indication: Prophylaxis
     Dosage: DAILY DOSE: 40 MILLIGRAM
     Route: 048
     Dates: start: 20040301
  8. Naloxene/Tilidine [Concomitant]
     Indication: Prophylaxis
     Dosage: DAILY DOSE: 50 MILLIGRAM
     Route: 048
     Dates: start: 20210801
  9. PREGABALIN [Concomitant]
     Active Substance: PREGABALIN
     Indication: Prophylaxis
     Dosage: DAILY DOSE: 100 MILLIGRAM
     Route: 048
     Dates: start: 20180701
  10. METAMIZOLE [Concomitant]
     Active Substance: METAMIZOLE
     Indication: Fibromyalgia
     Dosage: DAILY DOSE: 1000 MILLIGRAM
     Route: 048
     Dates: start: 20230510
  11. ALLOPURINOL [Concomitant]
     Active Substance: ALLOPURINOL
     Indication: Prophylaxis
     Dosage: DAILY DOSE: 300 MILLIGRAM
     Route: 048
     Dates: start: 20210201
  12. METOPROLOL [Concomitant]
     Active Substance: METOPROLOL
     Indication: Prophylaxis
     Dosage: DAILY DOSE: 47.5 MILLIGRAM
     Route: 048
     Dates: start: 20170101
  13. DENOSUMAB [Concomitant]
     Active Substance: DENOSUMAB
     Indication: Prophylaxis
     Dosage: 120 MG, MONTHLY
     Route: 058
     Dates: start: 20230726
  14. MIRTAZAPINE [Concomitant]
     Active Substance: MIRTAZAPINE
     Indication: Prophylaxis
     Dosage: DAILY DOSE: 15 MILLIGRAM
     Route: 048
     Dates: start: 20180701
  15. DEXAMETHASONE SODIUM PHOSPHATE [Concomitant]
     Active Substance: DEXAMETHASONE PHOSPHATE\DEXAMETHASONE SODIUM PHOSPHATE
     Indication: Prophylaxis
     Dosage: DAILY DOSE: 8 MILLIGRAM
     Route: 048
     Dates: start: 20230222
  16. Erypo [Concomitant]
     Dates: start: 20230525

REACTIONS (3)
  - Abdominal pain upper [Recovering/Resolving]
  - Faeces discoloured [Recovering/Resolving]
  - Sepsis [Recovering/Resolving]

NARRATIVE: CASE EVENT DATE: 20230525
